FAERS Safety Report 19050558 (Version 4)
Quarter: 2021Q2

REPORT INFORMATION
  Report Type: Spontaneous
  Country: US (occurrence: US)
  Receive Date: 20210323
  Receipt Date: 20210630
  Transmission Date: 20210717
  Serious: No
  Sender: FDA-Public Use
  Company Number: US-BEH-2021129840

PATIENT
  Age: 60 Year
  Sex: Female

DRUGS (2)
  1. HIZENTRA [Suspect]
     Active Substance: HUMAN IMMUNOGLOBULIN G
     Dosage: 15 GRAM, QW, 4 SITES, 19 ML/SITE
     Route: 058
     Dates: start: 202010
  2. HIZENTRA [Suspect]
     Active Substance: HUMAN IMMUNOGLOBULIN G
     Indication: CHRONIC INFLAMMATORY DEMYELINATING POLYRADICULONEUROPATHY
     Dosage: UNK
     Route: 058
     Dates: start: 20210317, end: 20210317

REACTIONS (9)
  - Recalled product administered [Recovered/Resolved]
  - Injection site irritation [Recovered/Resolved]
  - Injection site erythema [Unknown]
  - Injection site urticaria [Unknown]
  - Fatigue [Unknown]
  - Injection site urticaria [Unknown]
  - Recalled product administered [Unknown]
  - Injection site pruritus [Unknown]
  - Injection site erythema [Unknown]

NARRATIVE: CASE EVENT DATE: 20210317
